FAERS Safety Report 13676576 (Version 5)
Quarter: 2017Q3

REPORT INFORMATION
  Report Type: Report from Study
  Country: DE (occurrence: DE)
  Receive Date: 20170622
  Receipt Date: 20170919
  Transmission Date: 20171127
  Serious: Yes (Hospitalization, Other)
  Sender: FDA-Public Use
  Company Number: DE-BRISTOL-MYERS SQUIBB COMPANY-BMS-2017-054664

PATIENT
  Age: 69 Year
  Sex: Female

DRUGS (4)
  1. HYDROMORPHONE HYDROCHLORIDE. [Concomitant]
     Active Substance: HYDROMORPHONE HYDROCHLORIDE
     Indication: PRODUCT USED FOR UNKNOWN INDICATION
     Route: 065
  2. NIVOLUMAB [Suspect]
     Active Substance: NIVOLUMAB
     Indication: MALIGNANT MELANOMA
     Dosage: 316.5 MG, Q2WK
     Route: 042
     Dates: start: 20170609
  3. METAMIZOLE SODIUM MONOHYDRATE [Concomitant]
     Active Substance: METAMIZOLE SODIUM
     Indication: PRODUCT USED FOR UNKNOWN INDICATION
     Route: 065
  4. ENOXAPARIN SODIUM. [Concomitant]
     Active Substance: ENOXAPARIN SODIUM
     Indication: PRODUCT USED FOR UNKNOWN INDICATION
     Dosage: UNK
     Route: 065

REACTIONS (6)
  - Humerus fracture [Recovering/Resolving]
  - Fall [Unknown]
  - Nausea [Not Recovered/Not Resolved]
  - Central venous catheterisation [Recovered/Resolved]
  - Anaemia [Unknown]
  - Tumour pain [Unknown]

NARRATIVE: CASE EVENT DATE: 20170614
